FAERS Safety Report 5416551-7 (Version None)
Quarter: 2007Q3

REPORT INFORMATION
  Report Type: 
  Country: None (occurrence: None)
  Receive Date: 20070814
  Receipt Date: 20070814
  Transmission Date: 20080115
  Serious: No
  Sender: FDA-Public Use
  Company Number: None

PATIENT
  Sex: Female
  Weight: 78.9259 kg

DRUGS (2)
  1. OXYCODONE AND ACETAMINOPHEN [Suspect]
     Indication: OSTEOARTHRITIS
     Dosage: 1 TAB Q 6 HRS PO PT HAS RESPONDED WELL TO BRAND
     Route: 048
  2. OXYCODONE AND ACETAMINOPHEN [Suspect]
     Indication: RADICULITIS
     Dosage: 1 TAB Q 6 HRS PO PT HAS RESPONDED WELL TO BRAND
     Route: 048

REACTIONS (2)
  - PHARMACEUTICAL PRODUCT COMPLAINT [None]
  - RASH [None]
